FAERS Safety Report 18037345 (Version 1)
Quarter: 2020Q3

REPORT INFORMATION
  Report Type: Spontaneous
  Country: GB (occurrence: GB)
  Receive Date: 20200717
  Receipt Date: 20200717
  Transmission Date: 20201103
  Serious: Yes (Hospitalization)
  Sender: FDA-Public Use
  Company Number: GB-JNJFOC-20200712902

PATIENT
  Age: 46 Year

DRUGS (7)
  1. APIXABAN [Concomitant]
     Active Substance: APIXABAN
     Indication: DEEP VEIN THROMBOSIS
     Dosage: DRUG CUMULATIVE DOSAGE: 40 MG
     Route: 048
     Dates: start: 20200622
  2. GABAPENTIN. [Concomitant]
     Active Substance: GABAPENTIN
     Route: 048
     Dates: start: 20200622
  3. SALMETEROL [Concomitant]
     Active Substance: SALMETEROL
     Dosage: 25 MICRO GRAMS/DOSE?ADDITIONAL INFO: CFC FREE, PUFFS
     Route: 055
  4. TOPIRAMATE. [Suspect]
     Active Substance: TOPIRAMATE
     Indication: MIGRAINE PROPHYLAXIS
     Dosage: DRUG CUMULATIVE DOSAGE? 100 MG
     Route: 048
     Dates: start: 20200622, end: 20200626
  5. CANDESARTAN. [Concomitant]
     Active Substance: CANDESARTAN
     Route: 048
  6. CLOPIDOGREL [Concomitant]
     Active Substance: CLOPIDOGREL BISULFATE
     Dosage: WAS PREVIOUSLY TAKING FOR STROKES. STOPPED WHEN APIXABAN STARTED
     Route: 048
     Dates: end: 20200621
  7. QVAR [Concomitant]
     Active Substance: BECLOMETHASONE DIPROPIONATE
     Dosage: PUFFS 100 MICRO GRAMS/DOSE,  INHALED. QVAR CFC FREE
     Route: 055

REACTIONS (1)
  - Aphasia [Recovered/Resolved]

NARRATIVE: CASE EVENT DATE: 20200626
